FAERS Safety Report 8132752-1 (Version None)
Quarter: 2012Q1

REPORT INFORMATION
  Report Type: 
  Country: None (occurrence: None)
  Receive Date: 20120208
  Receipt Date: 20120123
  Transmission Date: 20120608
  Serious: Yes (Life-Threatening)
  Sender: FDA-Public Use
  Company Number: TCI2012A00424

PATIENT
  Age: 75 Year
  Sex: Male

DRUGS (2)
  1. AMARYL [Concomitant]
  2. ACTOS [Suspect]
     Indication: DIABETES MELLITUS
     Dosage: 15 MG (15 MG, 1 D)
     Route: 048
     Dates: start: 20101001, end: 20110701

REACTIONS (2)
  - HAEMATURIA [None]
  - BLADDER CANCER [None]
